FAERS Safety Report 8190712-9 (Version None)
Quarter: 2012Q1

REPORT INFORMATION
  Report Type: 
  Country: None (occurrence: None)
  Receive Date: 20120307
  Receipt Date: 20120229
  Transmission Date: 20120608
  Serious: Yes (Other)
  Sender: FDA-Public Use
  Company Number: US-ROCHE-1044451

PATIENT
  Sex: Female

DRUGS (4)
  1. BONIVA [Suspect]
     Indication: OSTEOPOROSIS
  2. REQUIP [Concomitant]
  3. AZILECT [Concomitant]
  4. ZOLOFT [Concomitant]

REACTIONS (2)
  - TIBIA FRACTURE [None]
  - FEMUR FRACTURE [None]
